FAERS Safety Report 11162833 (Version 1)
Quarter: 2015Q2

REPORT INFORMATION
  Report Type: Spontaneous
  Country: US (occurrence: US)
  Receive Date: 20150604
  Receipt Date: 20150604
  Transmission Date: 20150821
  Serious: No
  Sender: FDA-Public Use
  Company Number: US-SA-2014SA166586

PATIENT
  Age: 74 Year
  Sex: Male

DRUGS (3)
  1. NOVOLOG [Concomitant]
     Active Substance: INSULIN ASPART
  2. LANTUS SOLOSTAR [Suspect]
     Active Substance: INSULIN GLARGINE
     Indication: TYPE 2 DIABETES MELLITUS
     Dosage: DOSE: 60 U AM + 70 U PM
     Route: 065
     Dates: start: 1999
  3. SOLOSTAR [Concomitant]
     Active Substance: DEVICE
     Dates: start: 1999

REACTIONS (4)
  - Scar [Unknown]
  - Injection site pain [Unknown]
  - Injection site bruising [Unknown]
  - Drug administration error [Unknown]
